FAERS Safety Report 4448655-X (Version None)
Quarter: 2004Q3

REPORT INFORMATION
  Report Type: 
  Country: None (occurrence: None)
  Receive Date: 20040909
  Receipt Date: 20040827
  Transmission Date: 20050211
  Serious: Yes (Hospitalization, Other)
  Sender: FDA-Public Use
  Company Number: HQWYE651530AUG04

PATIENT
  Age: 71 Year
  Sex: Male

DRUGS (4)
  1. CORDARONE [Suspect]
     Dosage: 200 MG 5X PER 1 WK; ORAL
     Route: 048
  2. AMLODIPINE BESYLATE [Suspect]
     Dosage: 5 MG 1X PER 1 DAY
     Route: 048
  3. DISCOTRINE  (GLYCERYL TRINITRATE, DISC) [Suspect]
     Dosage: 15 MG 1X PER 1 DAY
     Route: 062
  4. IRESSA [Suspect]
     Indication: CARCINOMA
     Dosage: 250 MG 1X PER 1 DAY
     Route: 048
     Dates: start: 20040624, end: 20040716

REACTIONS (2)
  - DERMATITIS ACNEIFORM [None]
  - HAEMOPTYSIS [None]
